FAERS Safety Report 18716829 (Version 1)
Quarter: 2021Q1

REPORT INFORMATION
  Report Type: Spontaneous
  Country: ES (occurrence: ES)
  Receive Date: 20210108
  Receipt Date: 20210108
  Transmission Date: 20210419
  Serious: Yes (Death, Other)
  Sender: FDA-Public Use
  Company Number: ES-ABBVIE-21K-144-3720589-00

PATIENT
  Age: 69 Year
  Sex: Male
  Weight: 80 kg

DRUGS (3)
  1. FUROSEMIDA [Interacting]
     Active Substance: FUROSEMIDE
     Indication: POLYURIA
     Dosage: 24/3 30 MG, 25/3 50 MG, 27/3 60 MG, 28/3 120 MG, 29/3 26 MG
     Route: 042
     Dates: start: 20200325, end: 20200329
  2. LOPINAVIR/RITONAVIR [Suspect]
     Active Substance: LOPINAVIR\RITONAVIR
     Indication: COVID-19
     Dosage: 10 ML/DIA
     Route: 048
     Dates: start: 20200324, end: 20200403
  3. HIDROXICLOROQUINA [Interacting]
     Active Substance: HYDROXYCHLOROQUINE
     Indication: COVID-19
     Dosage: 400 MG EVERY 12H 1ER DIA, THEN 200 MG EVERY 12H
     Route: 048
     Dates: start: 20200324, end: 20200331

REACTIONS (5)
  - Large intestine perforation [Fatal]
  - Drug interaction [Unknown]
  - Off label use [Unknown]
  - Renal failure [Recovered/Resolved]
  - Hypernatraemia [Recovered/Resolved]

NARRATIVE: CASE EVENT DATE: 2020
